FAERS Safety Report 4553115-1 (Version None)
Quarter: 2005Q1

REPORT INFORMATION
  Report Type: 
  Country: None (occurrence: None)
  Receive Date: 20050112
  Receipt Date: 20050112
  Transmission Date: 20050727
  Serious: No
  Sender: FDA-Public Use
  Company Number: None

PATIENT
  Sex: Female
  Weight: 68.0396 kg

DRUGS (1)
  1. OXYCODONE ER 80MG [Suspect]
     Indication: OSTEOARTHRITIS
     Dosage: 80MG PO Q 8H
     Route: 048
     Dates: start: 20050105, end: 20050111

REACTIONS (5)
  - ABDOMINAL PAIN [None]
  - DRUG EFFECT DECREASED [None]
  - DRUG WITHDRAWAL SYNDROME [None]
  - HYPERHIDROSIS [None]
  - PHARMACEUTICAL PRODUCT COMPLAINT [None]
